FAERS Safety Report 9711679 (Version 1)
Quarter: 2013Q4

REPORT INFORMATION
  Report Type: Spontaneous
  Country: US (occurrence: US)
  Receive Date: 20131126
  Receipt Date: 20131126
  Transmission Date: 20140711
  Serious: No
  Sender: FDA-Public Use
  Company Number: US-BRISTOL-MYERS SQUIBB COMPANY-19095058

PATIENT
  Age: 70 Year
  Sex: Male
  Weight: 126.98 kg

DRUGS (3)
  1. BYDUREON [Suspect]
     Indication: DIABETES MELLITUS
     Dosage: NO OF INJECTIONS:2
     Dates: start: 20130624
  2. METFORMIN HCL [Suspect]
     Indication: DIABETES MELLITUS
     Dosage: BEFORE EXENATIDE THERAPY: 2000 MG?DOSE VALUE:500MG THEN INCREASED TO 1000MG AND FINALLY 2000MG
  3. GLIPIZIDE [Suspect]
     Indication: DIABETES MELLITUS
     Dosage: BEFORE EXENATIDE THERAPY: 20 MG ?DOSE VALUE:10MG

REACTIONS (2)
  - Blood glucose increased [Unknown]
  - Medication error [Unknown]
